FAERS Safety Report 4491430-0 (Version None)
Quarter: 2004Q4

REPORT INFORMATION
  Report Type: 
  Country: None (occurrence: None)
  Receive Date: 20041103
  Receipt Date: 20041031
  Transmission Date: 20050328
  Serious: Yes (Hospitalization)
  Sender: FDA-Public Use
  Company Number: PHBS2004IE14622

PATIENT
  Sex: Male

DRUGS (1)
  1. LAMISIL [Suspect]
     Indication: NAIL TINEA
     Route: 065

REACTIONS (4)
  - DYSPNOEA [None]
  - JOINT STIFFNESS [None]
  - LETHARGY [None]
  - PNEUMONIA [None]
